FAERS Safety Report 15906179 (Version 1)
Quarter: 2019Q1

REPORT INFORMATION
  Report Type: Spontaneous
  Country: US (occurrence: US)
  Receive Date: 20190111
  Receipt Date: 20190111
  Transmission Date: 20190417
  Serious: Yes (Disabling)
  Sender: FDA-Public Use
  Company Number: None

PATIENT
  Age: 51 Year
  Sex: Female
  Weight: 67.5 kg

DRUGS (2)
  1. PREDNISONE. [Suspect]
     Active Substance: PREDNISONE
  2. LEVOFLOXACIN. [Suspect]
     Active Substance: LEVOFLOXACIN
     Indication: SINUSITIS
     Dosage: ?          QUANTITY:1 TABLET(S);?
     Route: 048
     Dates: start: 20160601, end: 20160610

REACTIONS (8)
  - Neuropathy peripheral [None]
  - Fibromyalgia [None]
  - Insomnia [None]
  - Anxiety [None]
  - Rash erythematous [None]
  - Headache [None]
  - Depression [None]
  - Feeling abnormal [None]

NARRATIVE: CASE EVENT DATE: 20160601
